FAERS Safety Report 8616311-X (Version None)
Quarter: 2012Q3

REPORT INFORMATION
  Report Type: 
  Country: None (occurrence: None)
  Receive Date: 20120823
  Receipt Date: 20120816
  Transmission Date: 20120928
  Serious: No
  Sender: FDA-Public Use
  Company Number: US-B.I. PHARMACEUTICALS,INC./RIDGEFIELD-2012-BP-19666BP

PATIENT
  Age: 61 Year
  Sex: Female

DRUGS (6)
  1. ASPIRIN [Concomitant]
  2. FOSAMAX [Concomitant]
     Route: 048
     Dates: start: 20040101
  3. SPIRIVA [Suspect]
     Route: 048
     Dates: start: 20120816, end: 20120816
  4. SPIRIVA [Suspect]
     Indication: EMPHYSEMA
     Dosage: 18 MCG
     Route: 055
     Dates: start: 20100101
  5. MULTI-VITAMIN [Concomitant]
     Route: 048
  6. CALCIUM [Concomitant]
     Route: 048

REACTIONS (1)
  - INCORRECT ROUTE OF DRUG ADMINISTRATION [None]
